APPROVED DRUG PRODUCT: PEDIATRIC LTA KIT
Active Ingredient: LIDOCAINE HYDROCHLORIDE
Strength: 2%
Dosage Form/Route: SOLUTION;TOPICAL
Application: A088572 | Product #001
Applicant: ABBOTT LABORATORIES PHARMACEUTICAL PRODUCTS DIV
Approved: Jul 31, 1984 | RLD: No | RS: No | Type: DISCN